FAERS Safety Report 7414531-3 (Version None)
Quarter: 2011Q2

REPORT INFORMATION
  Report Type: 
  Country: None (occurrence: None)
  Receive Date: 20110414
  Receipt Date: 20110406
  Transmission Date: 20111010
  Serious: Yes (Life-Threatening, Hospitalization, Disabling, Other)
  Sender: FDA-Public Use
  Company Number: JP-NOVOPROD-325496

PATIENT
  Age: 71 Year
  Sex: Male
  Weight: 48 kg

DRUGS (5)
  1. AMARYL [Concomitant]
     Indication: TYPE 2 DIABETES MELLITUS
     Dosage: 1 MG, QD
     Route: 048
  2. CALBLOCK [Concomitant]
     Indication: HYPERTENSION
     Dosage: 8 MG, QD
     Route: 048
  3. VICTOZA [Suspect]
     Indication: TYPE 2 DIABETES MELLITUS
     Dosage: 0.3 MG, QD
     Route: 058
     Dates: start: 20110105, end: 20110323
  4. MICARDIS [Concomitant]
     Indication: HYPERTENSION
     Dosage: 40 MG, QD
     Route: 048
  5. JUVELA N [Concomitant]
     Indication: HYPERTENSION
     Dosage: 300 MG, QD
     Route: 048

REACTIONS (6)
  - HEPATIC FUNCTION ABNORMAL [None]
  - HEPATIC NEOPLASM [None]
  - DECREASED APPETITE [None]
  - ANAEMIA [None]
  - MALAISE [None]
  - GASTRIC CANCER [None]
